FAERS Safety Report 24538212 (Version 2)
Quarter: 2024Q4

REPORT INFORMATION
  Report Type: Spontaneous
  Country: US (occurrence: US)
  Receive Date: 20241023
  Receipt Date: 20241029
  Transmission Date: 20250115
  Serious: No
  Sender: TEVA
  Company Number: US-TEVA-VS-3251275

PATIENT
  Age: 14 Year
  Sex: Male

DRUGS (1)
  1. QVAR REDIHALER [Suspect]
     Active Substance: BECLOMETHASONE DIPROPIONATE
     Indication: Asthma
     Dosage: STRENGTH: 80 MCG, DOSAGE FORM: INHALATION - AEROSOL
     Route: 065

REACTIONS (4)
  - Drug ineffective [Unknown]
  - Product contamination physical [Unknown]
  - Product taste abnormal [Unknown]
  - Product dispensing issue [Unknown]
